FAERS Safety Report 8559167-6 (Version None)
Quarter: 2012Q3

REPORT INFORMATION
  Report Type: 
  Country: None (occurrence: None)
  Receive Date: 20120802
  Receipt Date: 20120729
  Transmission Date: 20120928
  Serious: Yes (Other)
  Sender: FDA-Public Use
  Company Number: US-AMGEN-USASP2012047490

PATIENT
  Age: 60 Year
  Sex: Male

DRUGS (2)
  1. ENBREL [Suspect]
     Indication: RHEUMATOID ARTHRITIS
     Dosage: 25 MG, 2 TIMES/WK
     Dates: start: 20041205
  2. PREDNISONE [Concomitant]
     Dosage: UNK

REACTIONS (15)
  - FATIGUE [None]
  - DYSURIA [None]
  - WEIGHT INCREASED [None]
  - VISUAL IMPAIRMENT [None]
  - POLLAKIURIA [None]
  - GASTROOESOPHAGEAL REFLUX DISEASE [None]
  - ORAL MUCOSAL DISCOLOURATION [None]
  - RHEUMATOID ARTHRITIS [None]
  - ANXIETY [None]
  - HIATUS HERNIA [None]
  - DEPRESSION [None]
  - HEADACHE [None]
  - OROPHARYNGEAL PAIN [None]
  - ABDOMINAL PAIN UPPER [None]
  - CONTUSION [None]
